FAERS Safety Report 10555659 (Version 1)
Quarter: 2014Q4

REPORT INFORMATION
  Report Type: Spontaneous
  Country: BR (occurrence: BR)
  Receive Date: 20141030
  Receipt Date: 20141030
  Transmission Date: 20150529
  Serious: Yes (Death, Hospitalization)
  Sender: FDA-Public Use
  Company Number: BR-DSJP-DSU-2014-126852

PATIENT

DRUGS (2)
  1. OLMETEC ANLO [Suspect]
     Active Substance: AMLODIPINE BESYLATE\OLMESARTAN MEDOXOMIL
     Indication: HYPERTENSION
     Dosage: 5/40MG, QD
     Route: 048
     Dates: start: 201112, end: 20140928
  2. APRESOLINE HYDROCHLORIDE [Concomitant]
     Active Substance: HYDRALAZINE HYDROCHLORIDE
     Indication: HYPERTENSION
     Dosage: 1 DF, BID
     Dates: start: 201112, end: 20140928

REACTIONS (4)
  - Pneumonia [Fatal]
  - Drug ineffective [Unknown]
  - Multi-organ failure [Fatal]
  - Cholecystitis [Fatal]

NARRATIVE: CASE EVENT DATE: 2013
